FAERS Safety Report 5530819-5 (Version None)
Quarter: 2007Q4

REPORT INFORMATION
  Report Type: 
  Country: None (occurrence: None)
  Receive Date: 20071130
  Receipt Date: 20071128
  Transmission Date: 20080405
  Serious: Yes (Hospitalization)
  Sender: FDA-Public Use
  Company Number: FR-BRISTOL-MYERS SQUIBB COMPANY-13998356

PATIENT
  Age: 65 Year
  Sex: Male

DRUGS (2)
  1. ELISOR [Suspect]
     Dates: start: 20070101, end: 20071008
  2. PLAVIX [Suspect]

REACTIONS (1)
  - PORPHYRIA NON-ACUTE [None]
